FAERS Safety Report 8010765-8 (Version None)
Quarter: 2011Q4

REPORT INFORMATION
  Report Type: 
  Country: None (occurrence: None)
  Receive Date: 20111228
  Receipt Date: 20111221
  Transmission Date: 20120403
  Serious: Yes (Life-Threatening)
  Sender: FDA-Public Use
  Company Number: FR-SANOFI-AVENTIS-2011SA083621

PATIENT
  Age: 46 Year
  Sex: Male

DRUGS (5)
  1. RIFADIN [Suspect]
     Route: 048
     Dates: start: 20030701
  2. ZERIT [Suspect]
     Route: 048
     Dates: start: 20030701
  3. MYAMBUTOL [Suspect]
     Route: 048
     Dates: start: 20030701
  4. ISONIAZID [Suspect]
     Route: 048
     Dates: start: 20030701
  5. EPIVIR [Suspect]
     Route: 048
     Dates: start: 20030701

REACTIONS (1)
  - HEPATITIS FULMINANT [None]
